FAERS Safety Report 8126642-8 (Version None)
Quarter: 2012Q1

REPORT INFORMATION
  Report Type: 
  Country: None (occurrence: None)
  Receive Date: 20120210
  Receipt Date: 20120201
  Transmission Date: 20120608
  Serious: Yes (Hospitalization)
  Sender: FDA-Public Use
  Company Number: US-BIOGENIDEC-2012BI003374

PATIENT
  Age: 45 Year
  Sex: Female

DRUGS (1)
  1. TYSABRI [Suspect]
     Indication: MULTIPLE SCLEROSIS
     Route: 042
     Dates: start: 20060823, end: 20111215

REACTIONS (8)
  - PAIN [None]
  - NIGHT SWEATS [None]
  - SINUSITIS [None]
  - UPPER RESPIRATORY TRACT CONGESTION [None]
  - PYREXIA [None]
  - INCREASED UPPER AIRWAY SECRETION [None]
  - COUGH [None]
  - BRONCHITIS [None]
